FAERS Safety Report 8230429-5 (Version None)
Quarter: 2012Q1

REPORT INFORMATION
  Report Type: 
  Country: None (occurrence: None)
  Receive Date: 20120323
  Receipt Date: 20120319
  Transmission Date: 20120608
  Serious: No
  Sender: FDA-Public Use
  Company Number: US-PFIZER INC-2012071445

PATIENT
  Sex: Female

DRUGS (2)
  1. NORVASC [Suspect]
     Dosage: UNK
  2. AMLODIPINE [Suspect]
     Dosage: 5 MG, 1X/DAY
     Route: 048

REACTIONS (1)
  - ALOPECIA [None]
